FAERS Safety Report 16591312 (Version 5)
Quarter: 2020Q3

REPORT INFORMATION
  Report Type: Report from Study
  Country: CO (occurrence: CO)
  Receive Date: 20190718
  Receipt Date: 20200717
  Transmission Date: 20201102
  Serious: Yes (Hospitalization, Other)
  Sender: FDA-Public Use
  Company Number: CO-ASTELLAS-2018US039943

PATIENT
  Age: 44 Year
  Sex: Female
  Weight: 39 kg

DRUGS (11)
  1. TACROLIMUS. [Interacting]
     Active Substance: TACROLIMUS
     Route: 048
     Dates: start: 20150405
  2. MYCOPHENOLATE [Concomitant]
     Active Substance: MYCOPHENOLIC ACID
     Dosage: UNK, UNKNOWN FREQ.
     Route: 048
  3. MYCOPHENOLATE [Concomitant]
     Active Substance: MYCOPHENOLIC ACID
     Indication: RENAL TRANSPLANT
     Route: 048
     Dates: start: 20150405
  4. PREDNISOLONE. [Concomitant]
     Active Substance: PREDNISOLONE
     Route: 048
  5. TACROLIMUS. [Interacting]
     Active Substance: TACROLIMUS
     Route: 048
  6. TACROLIMUS. [Interacting]
     Active Substance: TACROLIMUS
     Dosage: 6 MG (1 CAPSULE OF 5 MG AND 1 CAPSULE OF 1 MG), ONCE DAILY
     Route: 048
  7. POSACONAZOLE [Interacting]
     Active Substance: POSACONAZOLE
     Indication: PRODUCT USED FOR UNKNOWN INDICATION
     Dosage: UNK UNK, UNKNOWN FREQ.
     Route: 065
  8. TACROLIMUS. [Interacting]
     Active Substance: TACROLIMUS
     Dosage: 2 MG (2 CASPSULES OF 1 MG), ONCE DAILY
     Route: 048
  9. PREDNISOLONE. [Concomitant]
     Active Substance: PREDNISOLONE
     Indication: RENAL TRANSPLANT
     Route: 048
     Dates: start: 20150405
  10. TACROLIMUS. [Suspect]
     Active Substance: TACROLIMUS
     Indication: RENAL TRANSPLANT
     Dosage: 7 MG (1 CAPSULE OF 5 MG AND 2 CAPSULES OF 1 MG), ONCE DAILY
     Route: 048
  11. CARVEDILOL. [Concomitant]
     Active Substance: CARVEDILOL
     Indication: BLOOD PRESSURE ABNORMAL
     Route: 048
     Dates: start: 201212

REACTIONS (14)
  - Chronic sinusitis [Recovered/Resolved]
  - Gastroenteritis Escherichia coli [Recovered/Resolved]
  - Secondary immunodeficiency [Unknown]
  - Histoplasmosis [Recovering/Resolving]
  - Toxoplasmosis [Recovering/Resolving]
  - Pulmonary hypertensive crisis [Unknown]
  - Cytomegalovirus infection [Recovering/Resolving]
  - Diarrhoea [Recovered/Resolved]
  - Histoplasmosis [Recovering/Resolving]
  - Hypotension [Recovered/Resolved]
  - Immunosuppressant drug level increased [Unknown]
  - Cytomegalovirus infection [Recovered/Resolved]
  - Blood creatinine increased [Not Recovered/Not Resolved]
  - Drug interaction [Recovered/Resolved]

NARRATIVE: CASE EVENT DATE: 2017
